FAERS Safety Report 6463140-1 (Version None)
Quarter: 2009Q4

REPORT INFORMATION
  Report Type: 
  Country: None (occurrence: None)
  Receive Date: 20091123
  Receipt Date: 20091109
  Transmission Date: 20100525
  Serious: Yes (Death)
  Sender: FDA-Public Use
  Company Number: 2009AC000375

PATIENT
  Age: 76 Year
  Sex: Female

DRUGS (2)
  1. DIGOXIN [Suspect]
  2. FOSINOPRIL SODIUM [Concomitant]

REACTIONS (19)
  - ABDOMINAL PAIN [None]
  - AORTIC VALVE INCOMPETENCE [None]
  - ATRIAL FIBRILLATION [None]
  - BLOOD PRESSURE INCREASED [None]
  - BUNDLE BRANCH BLOCK LEFT [None]
  - CARDIOTHORACIC RATIO INCREASED [None]
  - GASTROINTESTINAL SOUNDS ABNORMAL [None]
  - HAEMATOCHEZIA [None]
  - HYPERAEMIA [None]
  - HYPERTROPHY [None]
  - ISCHAEMIA [None]
  - LEUKOCYTOSIS [None]
  - MITRAL VALVE INCOMPETENCE [None]
  - NAUSEA [None]
  - OEDEMA [None]
  - OVERDOSE [None]
  - SEPSIS [None]
  - THERAPEUTIC AGENT TOXICITY [None]
  - ULCER [None]
